FAERS Safety Report 25838113 (Version 1)
Quarter: 2025Q3

REPORT INFORMATION
  Report Type: Spontaneous
  Country: US (occurrence: US)
  Receive Date: 20250923
  Receipt Date: 20250923
  Transmission Date: 20251021
  Serious: No
  Sender: ANI
  Company Number: US-ANIPHARMA-2025-US-029139

PATIENT
  Age: 68 Year
  Sex: Female
  Weight: 78.93 kg

DRUGS (10)
  1. CORTICOTROPIN [Suspect]
     Active Substance: CORTICOTROPIN
     Indication: Gout
     Route: 058
     Dates: start: 20241106, end: 20250613
  2. LETROZOLE [Concomitant]
     Active Substance: LETROZOLE
  3. ALLOPURINOL [Concomitant]
     Active Substance: ALLOPURINOL
  4. HUMALOG [Concomitant]
     Active Substance: INSULIN LISPRO
  5. ROSUVASTATIN [Concomitant]
     Active Substance: ROSUVASTATIN
  6. BUMETANIDE [Concomitant]
     Active Substance: BUMETANIDE
  7. XGEVA [Concomitant]
     Active Substance: DENOSUMAB
  8. FARXIGA [Concomitant]
     Active Substance: DAPAGLIFLOZIN PROPANEDIOL
  9. LOSARTAN [Concomitant]
     Active Substance: LOSARTAN
  10. REMICADE [Concomitant]
     Active Substance: INFLIXIMAB

REACTIONS (2)
  - Blood uric acid increased [Not Recovered/Not Resolved]
  - Contraindicated product administered [Recovered/Resolved]

NARRATIVE: CASE EVENT DATE: 20241106
